FAERS Safety Report 5950936-5 (Version None)
Quarter: 2008Q4

REPORT INFORMATION
  Report Type: 
  Country: None (occurrence: None)
  Receive Date: 20081112
  Receipt Date: 20081101
  Transmission Date: 20090506
  Serious: Yes (Hospitalization, Other)
  Sender: FDA-Public Use
  Company Number: US-PFIZER INC-2008092446

PATIENT
  Sex: Male

DRUGS (29)
  1. LYRICA [Suspect]
     Indication: NEUROPATHY PERIPHERAL
     Dates: start: 20060801
  2. HYDROCHLOROTHIAZIDE [Concomitant]
  3. DOXAZOSIN MESYLATE [Concomitant]
     Indication: HYPERTENSION
  4. TRICOR [Concomitant]
     Indication: BLOOD CHOLESTEROL
  5. NAMENDA [Concomitant]
  6. ATENOLOL [Concomitant]
     Indication: HYPERTENSION
  7. LISINOPRIL [Concomitant]
     Indication: HYPERTENSION
  8. ARICEPT [Concomitant]
  9. CLONAZEPAM [Concomitant]
     Indication: INSOMNIA
  10. ACETYLSALICYLIC ACID SRT [Concomitant]
  11. METHYLSULFONYLMETHANE [Concomitant]
  12. PYGEUM AFRICANUM [Concomitant]
  13. VITAMIN A AND D [Concomitant]
  14. MULTI-VITAMINS [Concomitant]
  15. GARLIC [Concomitant]
  16. VITAMIN E [Concomitant]
  17. ECHINACEA [Concomitant]
  18. CALCIUM [Concomitant]
  19. NIACIN [Concomitant]
  20. FOLIC ACID [Concomitant]
  21. POTASSIUM GLUCONATE TAB [Concomitant]
  22. LECITHIN [Concomitant]
  23. CO-Q-10 [Concomitant]
  24. VITAMIN B6 [Concomitant]
  25. LIPOIC ACID [Concomitant]
  26. IRON [Concomitant]
  27. ZINC [Concomitant]
  28. ASCORBIC ACID [Concomitant]
  29. AMBIEN [Concomitant]
     Indication: INSOMNIA

REACTIONS (9)
  - ARTHRALGIA [None]
  - CATARACT [None]
  - CORONARY ARTERY OCCLUSION [None]
  - FEELING HOT [None]
  - HYPERTENSION [None]
  - MYOCARDIAL INFARCTION [None]
  - OEDEMA PERIPHERAL [None]
  - SOMNOLENCE [None]
  - VISION BLURRED [None]
